FAERS Safety Report 5713117-6 (Version None)
Quarter: 2008Q2

REPORT INFORMATION
  Report Type: 
  Country: None (occurrence: None)
  Receive Date: 20080422
  Receipt Date: 20070403
  Transmission Date: 20081010
  Serious: No
  Sender: FDA-Public Use
  Company Number: US-BRISTOL-MYERS SQUIBB COMPANY-13737242

PATIENT
  Age: 66 Year
  Sex: Female
  Weight: 63 kg

DRUGS (8)
  1. HYDREA [Suspect]
     Indication: PLATELET COUNT
  2. AGRYLIN [Concomitant]
  3. BENICAR [Concomitant]
  4. SYNTHROID [Concomitant]
  5. FLUROSAMIDE [Concomitant]
  6. FOLIC ACID [Concomitant]
  7. ASCORBIC ACID [Concomitant]
  8. VITAMIN B-12 [Concomitant]

REACTIONS (1)
  - SKIN ULCER [None]
